FAERS Safety Report 9893342 (Version 1)
Quarter: 2014Q1

REPORT INFORMATION
  Report Type: Report from Study
  Country: CA (occurrence: CA)
  Receive Date: 20140213
  Receipt Date: 20140213
  Transmission Date: 20141002
  Serious: Yes (Other)
  Sender: FDA-Public Use
  Company Number: CA-JNJFOC-20140204582

PATIENT
  Age: 37 Year
  Sex: Female
  Weight: 68.5 kg

DRUGS (5)
  1. REMICADE [Suspect]
     Indication: COLITIS ULCERATIVE
     Dosage: 0-2-6 WEEKS
     Route: 042
     Dates: start: 20130123
  2. REMICADE [Suspect]
     Indication: COLITIS ULCERATIVE
     Dosage: 0-2-6
     Route: 042
     Dates: start: 20121217
  3. BENADRYL [Concomitant]
     Indication: PREMEDICATION
     Route: 048
  4. MEZAVANT [Concomitant]
     Route: 065
  5. TYLENOL [Concomitant]
     Indication: PREMEDICATION
     Route: 048

REACTIONS (7)
  - Hypoaesthesia oral [Recovering/Resolving]
  - Throat tightness [Recovering/Resolving]
  - Dyspepsia [Recovered/Resolved]
  - Back pain [Recovered/Resolved]
  - Cough [Recovering/Resolving]
  - Oedema peripheral [Recovered/Resolved]
  - Nausea [Recovered/Resolved]
